FAERS Safety Report 6978665-X (Version None)
Quarter: 2010Q3

REPORT INFORMATION
  Report Type: 
  Country: None (occurrence: None)
  Receive Date: 20100913
  Receipt Date: 20100901
  Transmission Date: 20110219
  Serious: Yes (Hospitalization)
  Sender: FDA-Public Use
  Company Number: A0859050A

PATIENT
  Sex: Male

DRUGS (8)
  1. AVANDIA [Suspect]
     Indication: DIABETES MELLITUS
     Route: 048
  2. GLUCOPHAGE [Concomitant]
  3. ALLOPURINOL [Concomitant]
  4. COZAAR [Concomitant]
  5. ZETIA [Concomitant]
  6. LIPITOR [Concomitant]
  7. COMBIVENT [Concomitant]
  8. LEVITRA [Concomitant]

REACTIONS (4)
  - ATRIOVENTRICULAR BLOCK COMPLETE [None]
  - CARDIAC FAILURE CONGESTIVE [None]
  - CORONARY ARTERY OCCLUSION [None]
  - ISCHAEMIC CARDIOMYOPATHY [None]
